FAERS Safety Report 9587399 (Version 3)
Quarter: 2014Q2

REPORT INFORMATION
  Report Type: Spontaneous
  Country: DE (occurrence: DE)
  Receive Date: 20131003
  Receipt Date: 20140410
  Transmission Date: 20141212
  Serious: Yes (Hospitalization)
  Sender: FDA-Public Use
  Company Number: DE-BRISTOL-MYERS SQUIBB COMPANY-19424175

PATIENT
  Age: 77 Year
  Sex: Female
  Weight: 73 kg

DRUGS (8)
  1. LITALIR [Suspect]
     Indication: MYELOPROLIFERATIVE DISORDER
     Dosage: INTERRUPTED:03AUG2013?THERAPY END DATE:3 OR 4TH AUG 2013?RESTARTED:07AUG13
     Route: 048
     Dates: start: 20130710, end: 201308
  2. SIMVASTATIN [Concomitant]
  3. ASS 100 [Concomitant]
     Route: 048
  4. CANDESARTAN [Concomitant]
     Indication: HYPERTENSION
  5. PANTOPRAZOLE [Concomitant]
     Indication: GASTRITIS
     Route: 048
     Dates: start: 201307
  6. METOCLOPRAMIDE HCL [Concomitant]
     Indication: NAUSEA
     Route: 048
  7. AMOXICILLIN [Concomitant]
     Indication: HELICOBACTER GASTRITIS
     Route: 048
     Dates: start: 20130710, end: 20130717
  8. CLARITHROMYCIN [Concomitant]
     Indication: HELICOBACTER GASTRITIS
     Route: 048
     Dates: start: 20130710, end: 20130717

REACTIONS (2)
  - Toxic epidermal necrolysis [Recovered/Resolved with Sequelae]
  - Off label use [Unknown]
